FAERS Safety Report 17114335 (Version 1)
Quarter: 2019Q4

REPORT INFORMATION
  Report Type: Spontaneous
  Country: ES (occurrence: ES)
  Receive Date: 20191205
  Receipt Date: 20191205
  Transmission Date: 20200122
  Serious: Yes (Hospitalization)
  Sender: FDA-Public Use
  Company Number: ES-TEVA-2019-ES-1146759

PATIENT
  Sex: Male
  Weight: 72.4 kg

DRUGS (16)
  1. NASONEX 50 MICROGRAMOS SUSPENSION PARA PULVERIZACION NASAL , 1 ENVASE [Concomitant]
     Dosage: 4-0-0
     Dates: start: 20170719
  2. TOVANOR BREEZHALER 44 MICROGRAMOS POLVO PARA INHALACION 5 BL?STERS DE [Concomitant]
     Dosage: 1-0-0
     Dates: start: 20181114
  3. ACFOL 5 MG COMPRIMIDOS , 28 COMPRIMIDOS [Concomitant]
     Dosage: 1-0-0
     Dates: start: 20190219
  4. MOVICOL SOLUCION ORAL EN SOBRE, 10 SOBRES [Concomitant]
     Dosage: 1-1-1
     Dates: start: 20191031
  5. PARACETAMOL APOTEX 650 MG COMPRIMIDOS EFG, 40 COMPRIMIDOS [Concomitant]
     Dosage: 1-1-1-1
     Dates: start: 20190613
  6. OMEPRAZOL 20 MG CAPSULAS [Concomitant]
     Dosage: 1-0-0
     Route: 048
     Dates: start: 20121018
  7. ATENOLOL  50 MG COMPRIMIDOS EFG [Concomitant]
     Dosage: 1-0-0
     Route: 048
     Dates: start: 20080802
  8. TERBASMIN TURBUHALER 500 MICROGRAMOS/INHALACION POLVO PARA INHALACION [Concomitant]
     Dosage: 1-0-0
     Dates: start: 20180320
  9. LOSARTAN. [Suspect]
     Active Substance: LOSARTAN
     Indication: HYPERTENSION
     Dosage: 25 MILLIGRAM PER DAY
     Dates: start: 20150119, end: 20191031
  10. AMERIDE [Concomitant]
     Indication: HYPERTENSION
     Dosage: 1 DOSAGE FORM PER DAY
     Route: 048
     Dates: start: 20160118, end: 20191023
  11. ZALDIAR 37,5 MG/325 MG COMPRIMIDOS EFERVESCENTES , 100 COMPRIMIDOS [Concomitant]
     Dosage: 1-1-1
     Dates: start: 20191011
  12. IBUPROFEN BRIL 600 MG COMPRIMIDOS RECUBIERTOS CON PELICULA EFG, 40 COM [Concomitant]
     Dosage: 1-0-0
     Dates: start: 20190613
  13. GEMFIBROZILO 600 MG COMPRIMIDOS EFG, [Concomitant]
     Dosage: 0-0-1
     Route: 048
     Dates: start: 20070402
  14. ATEZOLIZUMAB. [Suspect]
     Active Substance: ATEZOLIZUMAB
     Indication: LUNG NEOPLASM MALIGNANT
     Route: 042
     Dates: start: 20191017
  15. NOLOTIL 575 MG CAPSULAS DURAS, 10 [Concomitant]
     Active Substance: METAMIZOLE MAGNESIUM
     Dosage: 1-1-1-1
     Dates: start: 20191011
  16. LORAZEPAM  1 MG COMPRIMIDOS [Concomitant]
     Dosage: 1-0-0
     Dates: start: 20190620

REACTIONS (2)
  - Condition aggravated [Recovering/Resolving]
  - Hyponatraemia [Recovering/Resolving]

NARRATIVE: CASE EVENT DATE: 20191031
